FAERS Safety Report 8825795 (Version 5)
Quarter: 2014Q3

REPORT INFORMATION
  Report Type: Spontaneous
  Country: US (occurrence: US)
  Receive Date: 20121004
  Receipt Date: 20140714
  Transmission Date: 20150326
  Serious: Yes (Hospitalization, Disabling, Other)
  Sender: FDA-Public Use
  Company Number: US-009507513-1209USA011812

PATIENT
  Sex: Female
  Weight: 49.7 kg

DRUGS (3)
  1. FOSAMAX [Suspect]
     Active Substance: ALENDRONATE SODIUM
     Dosage: 70 MG, QD
     Route: 048
  2. ALENDRONATE SODIUM. [Suspect]
     Active Substance: ALENDRONATE SODIUM
     Indication: PRODUCT USED FOR UNKNOWN INDICATION
     Route: 048
  3. FOSAMAX [Suspect]
     Active Substance: ALENDRONATE SODIUM
     Indication: PRODUCT USED FOR UNKNOWN INDICATION
     Dosage: UNK
     Route: 048
     Dates: start: 1991, end: 1996

REACTIONS (34)
  - Fall [Unknown]
  - Osteoarthritis [Not Recovered/Not Resolved]
  - Neuroma [Unknown]
  - Osteopenia [Unknown]
  - Meniscus injury [Unknown]
  - Femoral hernia repair [Unknown]
  - Road traffic accident [Unknown]
  - Scoliosis [Unknown]
  - Intramedullary rod insertion [Unknown]
  - Haemoglobin decreased [Recovering/Resolving]
  - Jaw fracture [Unknown]
  - Periarthritis [Unknown]
  - Intervertebral disc protrusion [Unknown]
  - Arthropathy [Unknown]
  - Jaw operation [Unknown]
  - Varicose vein [Unknown]
  - Arthropathy [Not Recovered/Not Resolved]
  - Arthralgia [Not Recovered/Not Resolved]
  - Constipation [Unknown]
  - Bone graft [Unknown]
  - Wrist fracture [Unknown]
  - Intervertebral disc degeneration [Unknown]
  - Biopsy bone [Unknown]
  - Inappropriate schedule of drug administration [Unknown]
  - Muscle strain [Unknown]
  - Femur fracture [Recovering/Resolving]
  - Inguinal hernia repair [Unknown]
  - Spondylolisthesis [Unknown]
  - Spinal column stenosis [Unknown]
  - Hypertrophy [Unknown]
  - Paranasal sinus hypersecretion [Unknown]
  - Fall [Unknown]
  - Spinal compression fracture [Not Recovered/Not Resolved]
  - Vertebral foraminal stenosis [Unknown]

NARRATIVE: CASE EVENT DATE: 200104
